FAERS Safety Report 26040712 (Version 1)
Quarter: 2025Q4

REPORT INFORMATION
  Report Type: Report from Study
  Country: US (occurrence: US)
  Receive Date: 20251113
  Receipt Date: 20251113
  Transmission Date: 20260119
  Serious: No
  Sender: BIOVITRUM
  Company Number: US-BIOVITRUM-2025-US-015581

PATIENT
  Age: 52 Year
  Sex: Female

DRUGS (1)
  1. VONJO [Suspect]
     Active Substance: PACRITINIB
     Indication: Myelofibrosis

REACTIONS (3)
  - Haemoglobin abnormal [Unknown]
  - Platelet count abnormal [Unknown]
  - Off label use [Unknown]
